FAERS Safety Report 10012903 (Version 1)
Quarter: 2014Q1

REPORT INFORMATION
  Report Type: Spontaneous
  Country: US (occurrence: US)
  Receive Date: 20140314
  Receipt Date: 20140314
  Transmission Date: 20141002
  Serious: Yes (Hospitalization, Other)
  Sender: FDA-Public Use
  Company Number: US-TAKEDA-2014TUS001757

PATIENT
  Age: 3 Decade
  Sex: Female

DRUGS (4)
  1. BRINTELLIX [Suspect]
     Indication: ANXIETY
     Dosage: 10 MG, QAM
     Route: 048
     Dates: start: 20140121, end: 20140304
  2. BRINTELLIX [Suspect]
     Indication: DEPRESSION
  3. LEXAPRO [Concomitant]
     Indication: ANXIETY
     Route: 048
  4. LEXAPRO [Concomitant]
     Indication: DEPRESSION

REACTIONS (4)
  - Agitation [Unknown]
  - Suicidal behaviour [Unknown]
  - Nightmare [Unknown]
  - Anxiety [Unknown]
